FAERS Safety Report 15802968 (Version 2)
Quarter: 2019Q1

REPORT INFORMATION
  Report Type: Spontaneous
  Country: US (occurrence: US)
  Receive Date: 20190109
  Receipt Date: 20190301
  Transmission Date: 20190417
  Serious: Yes (Other)
  Sender: FDA-Public Use
  Company Number: US-BAYER-2019-005321

PATIENT
  Age: 31 Year
  Sex: Female

DRUGS (1)
  1. SKYLA [Suspect]
     Active Substance: LEVONORGESTREL
     Indication: CONTRACEPTION
     Dosage: 14 MCG/24HR, CONT
     Route: 015
     Dates: start: 20160601, end: 2018

REACTIONS (6)
  - Thyroid cancer [None]
  - Stress [None]
  - Menometrorrhagia [None]
  - Abdominal pain upper [None]
  - Device expulsion [None]
  - Menstruation irregular [None]

NARRATIVE: CASE EVENT DATE: 2018
